FAERS Safety Report 5619574-8 (Version None)
Quarter: 2008Q1

REPORT INFORMATION
  Report Type: 
  Country: None (occurrence: None)
  Receive Date: 20080205
  Receipt Date: 20080205
  Transmission Date: 20080703
  Serious: Yes (Disabling)
  Sender: FDA-Public Use
  Company Number: None

PATIENT
  Age: 53 Year
  Sex: Male
  Weight: 90.7194 kg

DRUGS (1)
  1. CHANTIX [Suspect]
     Indication: DEPRESSION
     Dosage: 1 MG TWICE A DAY PO
     Route: 048
     Dates: start: 20070521, end: 20070822

REACTIONS (2)
  - IMPAIRED WORK ABILITY [None]
  - PANIC ATTACK [None]
